FAERS Safety Report 5313197-6 (Version None)
Quarter: 2007Q2

REPORT INFORMATION
  Report Type: 
  Country: None (occurrence: None)
  Receive Date: 20070424
  Receipt Date: 20070409
  Transmission Date: 20071010
  Serious: Yes (Death)
  Sender: FDA-Public Use
  Company Number: 2007JP001564

PATIENT
  Sex: Female

DRUGS (3)
  1. PROGRAF [Suspect]
     Dosage: SEE IMAGE
     Route: 048
     Dates: start: 20070301, end: 20070301
  2. PROGRAF [Suspect]
     Dosage: SEE IMAGE
     Route: 048
     Dates: start: 20070301, end: 20070320
  3. BETAMETHASONE [Concomitant]

REACTIONS (3)
  - CONDITION AGGRAVATED [None]
  - GASTROINTESTINAL NECROSIS [None]
  - ILEUS [None]
